FAERS Safety Report 12381464 (Version 1)
Quarter: 2016Q2

REPORT INFORMATION
  Report Type: Spontaneous
  Country: CH (occurrence: CH)
  Receive Date: 20160518
  Receipt Date: 20160518
  Transmission Date: 20160815
  Serious: Yes (Hospitalization, Other)
  Sender: FDA-Public Use
  Company Number: CH-MEDA-2016050043

PATIENT
  Age: 22 Year
  Sex: Female

DRUGS (9)
  1. LIOTHYRONINE [Suspect]
     Active Substance: LIOTHYRONINE
  2. LEVOTHYROXINE. [Suspect]
     Active Substance: LEVOTHYROXINE
  3. INSULIN-LIKE GROWTH FACTOR 1 SEGMENT [Suspect]
     Active Substance: MECASERMIN
  4. ANASTROZOLE. [Suspect]
     Active Substance: ANASTROZOLE
  5. CHLORODEHYDROMETHYLTESTOSTERONE [Suspect]
     Active Substance: CHLORODEHYDROMETHYLTESTOSTERONE
  6. ALDACTONE [Suspect]
     Active Substance: SPIRONOLACTONE
     Indication: DIURETIC THERAPY
  7. CLENBUTEROL [Suspect]
     Active Substance: CLENBUTEROL
  8. TORASEMIDE [Suspect]
     Active Substance: TORSEMIDE
     Indication: DIURETIC THERAPY
  9. STANOZOLOL [Suspect]
     Active Substance: STANOZOLOL

REACTIONS (3)
  - Hyperthyroidism [Recovered/Resolved]
  - Acute respiratory distress syndrome [Recovered/Resolved]
  - Pneumonia [Recovered/Resolved]
